FAERS Safety Report 6865189-3 (Version None)
Quarter: 2010Q3

REPORT INFORMATION
  Report Type: 
  Country: None (occurrence: None)
  Receive Date: 20100721
  Receipt Date: 20080529
  Transmission Date: 20110219
  Serious: No
  Sender: FDA-Public Use
  Company Number: US-PFIZER INC-2008033440

PATIENT
  Sex: Female
  Weight: 47.17 kg

DRUGS (11)
  1. CHANTIX [Suspect]
     Indication: SMOKING CESSATION THERAPY
     Dates: start: 20080329, end: 20080404
  2. TRAZODONE HYDROCHLORIDE [Concomitant]
  3. ZOLOFT [Concomitant]
  4. VALIUM [Concomitant]
  5. XANAX [Concomitant]
  6. PREVACID [Concomitant]
  7. KLONOPIN [Concomitant]
  8. ATIVAN [Concomitant]
  9. LORCET-HD [Concomitant]
  10. ZESTRIL [Concomitant]
  11. LIBRIUM [Concomitant]

REACTIONS (16)
  - ABNORMAL DREAMS [None]
  - ANXIETY [None]
  - APATHY [None]
  - CONSTIPATION [None]
  - CRYING [None]
  - DECREASED APPETITE [None]
  - DEPRESSION [None]
  - DRUG WITHDRAWAL SYNDROME [None]
  - FATIGUE [None]
  - MALAISE [None]
  - NASOPHARYNGITIS [None]
  - NAUSEA [None]
  - RESTLESSNESS [None]
  - SLEEP DISORDER [None]
  - TREMOR [None]
  - VOMITING [None]
